FAERS Safety Report 12461151 (Version 1)
Quarter: 2016Q2

REPORT INFORMATION
  Report Type: Spontaneous
  Country: US (occurrence: US)
  Receive Date: 20160613
  Receipt Date: 20160613
  Transmission Date: 20160815
  Serious: No
  Sender: FDA-Public Use
  Company Number: US-US WORLDMEDS, LLC-USW201601-000031

PATIENT
  Age: 46 Year
  Sex: Male

DRUGS (7)
  1. CARBIDOPA/LEVODOPA [Suspect]
     Active Substance: CARBIDOPA\LEVODOPA
  2. AMANTADINE [Concomitant]
     Active Substance: AMANTADINE
  3. AZILECT [Concomitant]
     Active Substance: RASAGILINE MESYLATE
  4. CARBIDOPA/LEVODOPA EXTENDED RELEASE [Concomitant]
  5. LEXAPRIL [Concomitant]
     Active Substance: ESCITALOPRAM OXALATE
  6. APOKYN [Suspect]
     Active Substance: APOMORPHINE HYDROCHLORIDE
     Indication: PARKINSON^S DISEASE
     Dates: start: 201511
  7. APOKYN [Suspect]
     Active Substance: APOMORPHINE HYDROCHLORIDE

REACTIONS (6)
  - Overdose [Unknown]
  - Dystonia [Recovered/Resolved]
  - Therapeutic response increased [Recovered/Resolved]
  - Anxiety [Recovered/Resolved]
  - Stress [Recovered/Resolved]
  - Dyskinesia [Unknown]

NARRATIVE: CASE EVENT DATE: 20160110
